FAERS Safety Report 15451251 (Version 1)
Quarter: 2018Q4

REPORT INFORMATION
  Report Type: Spontaneous
  Country: US (occurrence: US)
  Receive Date: 20181001
  Receipt Date: 20181001
  Transmission Date: 20190204
  Serious: No
  Sender: FDA-Public Use
  Company Number: US-IPSEN BIOPHARMACEUTICALS, INC.-2018-14884

PATIENT
  Age: 11 Year
  Sex: Female

DRUGS (1)
  1. NUTROPIN AQ [Suspect]
     Active Substance: SOMATROPIN
     Indication: PRODUCT USED FOR UNKNOWN INDICATION
     Dosage: AQ NUSPIN 10
     Route: 058
     Dates: start: 201706

REACTIONS (2)
  - Mass [Unknown]
  - Limb mass [Unknown]

NARRATIVE: CASE EVENT DATE: 20180903
